FAERS Safety Report 19175642 (Version 1)
Quarter: 2021Q2

REPORT INFORMATION
  Report Type: Spontaneous
  Country: US (occurrence: US)
  Receive Date: 20210423
  Receipt Date: 20210423
  Transmission Date: 20210717
  Serious: Yes (Other)
  Sender: FDA-Public Use
  Company Number: US-TEVA-2021-US-1903485

PATIENT
  Sex: Female

DRUGS (2)
  1. PREDNISONE. [Suspect]
     Active Substance: PREDNISONE
     Indication: POLYMYALGIA RHEUMATICA
     Dosage: 20 MILLIGRAM DAILY; 20MG/DAY
     Route: 065
  2. XELPROS [Suspect]
     Active Substance: LATANOPROST
     Indication: GLAUCOMA
     Route: 065
     Dates: start: 2021

REACTIONS (3)
  - Glaucoma [Unknown]
  - Photosensitivity reaction [Recovering/Resolving]
  - Visual impairment [Recovering/Resolving]
